FAERS Safety Report 8721959 (Version 3)
Quarter: 2012Q4

REPORT INFORMATION
  Report Type: Report from Study
  Country: FR (occurrence: FR)
  Receive Date: 20120814
  Receipt Date: 20121109
  Transmission Date: 20130627
  Serious: Yes (Hospitalization, Other)
  Sender: FDA-Public Use
  Company Number: FR-GENZYME-CLOF-1002249

PATIENT
  Age: 79 Year
  Sex: Female
  Weight: 44 kg

DRUGS (16)
  1. EVOLTRA [Suspect]
     Indication: MYELODYSPLASTIC SYNDROME
     Dosage: 14 mg, qd
     Route: 042
     Dates: start: 20120716
  2. BACTRIM [Suspect]
     Indication: INFECTION
     Dosage: 4 amp
     Route: 042
     Dates: start: 20120811, end: 20120816
  3. BACTRIM [Suspect]
     Dosage: 1 amp, qd
     Route: 042
     Dates: start: 20120925, end: 20120925
  4. PANTOPRAZOLE [Suspect]
     Indication: GASTROOESOPHAGEAL REFLUX DISEASE
     Dosage: 1 DF, qd
     Route: 048
  5. CANCIDAS [Suspect]
     Indication: INFECTION
     Dosage: 70 mg, qd
     Route: 042
     Dates: start: 20120811, end: 20120811
  6. CANCIDAS [Suspect]
     Indication: NODULE
     Dosage: 50 mg, qd
     Route: 042
     Dates: start: 20120812, end: 20120815
  7. CANCIDAS [Suspect]
     Indication: FEBRILE BONE MARROW APLASIA
     Dosage: 50 mg, qd
     Route: 042
     Dates: start: 20120925, end: 20120925
  8. PRETERAX [Suspect]
     Indication: HYPERTENSION
     Dosage: 2.5 mg, qd
     Route: 048
  9. RALOXIFENE [Suspect]
     Indication: OSTEOPOROSIS
     Dosage: 1 DF, qd
     Route: 048
  10. ZOLPIDEM [Suspect]
     Indication: INSOMNIA
     Dosage: 5 mg, UNK
     Route: 048
     Dates: start: 20120910
  11. FUNGIZONE [Suspect]
     Indication: INFECTION
     Dosage: UNK
     Route: 065
     Dates: start: 20120910
  12. POTASSIUM CHLORIDE [Suspect]
     Indication: PRODUCT USED FOR UNKNOWN INDICATION
     Dosage: UNK
     Route: 042
     Dates: start: 20120910, end: 20120918
  13. SODIUM BICARBONATE [Suspect]
     Indication: INFECTION
     Dosage: UNK
     Route: 002
     Dates: start: 20120910
  14. LITICAN [Concomitant]
     Indication: NAUSEA
     Dosage: 6 amp, prn
     Route: 042
     Dates: start: 20120802
  15. LITICAN [Concomitant]
     Indication: VOMITING
  16. NEFOPAM [Concomitant]
     Indication: PAIN
     Dosage: 4 amp
     Route: 042
     Dates: start: 20120802

REACTIONS (6)
  - Febrile bone marrow aplasia [Recovered/Resolved]
  - General physical health deterioration [Recovered/Resolved]
  - Febrile bone marrow aplasia [Recovered/Resolved]
  - Aspartate aminotransferase increased [Not Recovered/Not Resolved]
  - Alanine aminotransferase increased [Not Recovered/Not Resolved]
  - Anaemia [Recovered/Resolved]
